FAERS Safety Report 9832737 (Version 1)
Quarter: 2014Q1

REPORT INFORMATION
  Report Type: Spontaneous
  Country: FR (occurrence: FR)
  Receive Date: 20140121
  Receipt Date: 20140121
  Transmission Date: 20141002
  Serious: No
  Sender: FDA-Public Use
  Company Number: FR-ASTRAZENECA-2014SE03220

PATIENT
  Age: 43 Year
  Sex: Male

DRUGS (1)
  1. ZOMIG [Suspect]
     Indication: MIGRAINE
     Dosage: AS NEEDED
     Route: 048

REACTIONS (1)
  - Migraine [Not Recovered/Not Resolved]
